FAERS Safety Report 9122928 (Version 1)
Quarter: 2013Q1

REPORT INFORMATION
  Report Type: Spontaneous
  Country: US (occurrence: US)
  Receive Date: 20130227
  Receipt Date: 20130227
  Transmission Date: 20140127
  Serious: No
  Sender: FDA-Public Use
  Company Number: US-GLAXOSMITHKLINE-A0988626A

PATIENT
  Age: 62 Year
  Sex: Female
  Weight: 61.4 kg

DRUGS (2)
  1. VALTREX [Suspect]
     Indication: PRODUCT USED FOR UNKNOWN INDICATION
     Dosage: 500MG PER DAY
     Route: 048
     Dates: start: 20101006
  2. NO CONCURRENT MEDICATIONS [Concomitant]

REACTIONS (2)
  - Impaired driving ability [Recovered/Resolved]
  - Breath alcohol test positive [Recovered/Resolved]
